FAERS Safety Report 23477466 (Version 1)
Quarter: 2024Q1

REPORT INFORMATION
  Report Type: Report from Study
  Country: US (occurrence: US)
  Receive Date: 20240204
  Receipt Date: 20240204
  Transmission Date: 20240410
  Serious: No
  Sender: FDA-Public Use
  Company Number: US-EXELIXIS-CABO-23065804

PATIENT
  Sex: Female

DRUGS (11)
  1. CABOMETYX [Suspect]
     Active Substance: CABOZANTINIB S-MALATE
     Indication: Renal cell carcinoma
     Dosage: 20 MG, QD
     Dates: end: 20230712
  2. METOPROLOL [Concomitant]
     Active Substance: METOPROLOL
  3. AMLODIPINE [Concomitant]
     Active Substance: AMLODIPINE BESYLATE
  4. SYNTHROID [Concomitant]
     Active Substance: LEVOTHYROXINE SODIUM
  5. FOSAMAX [Concomitant]
     Active Substance: ALENDRONATE SODIUM
  6. RESTASIS [Concomitant]
     Active Substance: CYCLOSPORINE
  7. ASPIRIN [Concomitant]
     Active Substance: ASPIRIN
  8. IRON [Concomitant]
     Active Substance: IRON
  9. KCL [Concomitant]
     Active Substance: POTASSIUM CHLORIDE
  10. CALCIUM [Concomitant]
     Active Substance: CALCIUM
  11. ANASTROZOLE [Concomitant]
     Active Substance: ANASTROZOLE

REACTIONS (3)
  - Skin exfoliation [Unknown]
  - Pain in extremity [Unknown]
  - Taste disorder [Unknown]
